FAERS Safety Report 7480896-X (Version None)
Quarter: 2011Q2

REPORT INFORMATION
  Report Type: 
  Country: None (occurrence: None)
  Receive Date: 20110506
  Receipt Date: 20110420
  Transmission Date: 20111010
  Serious: Yes (Hospitalization)
  Sender: FDA-Public Use
  Company Number: 2011-1227

PATIENT
  Age: 74 Year
  Sex: Female

DRUGS (6)
  1. CELLCEPT 500 MG (MYCOPHENOLATE MOFETIL) [Concomitant]
  2. PROGRAF [Concomitant]
  3. SOMATULINE DEPOT [Suspect]
     Indication: ACROMEGALY
     Dosage: 30 MG (30 MG, ONCE), SUBCUTANEOUS
     Route: 058
     Dates: start: 20100518, end: 20100518
  4. LEVOTHYROX (LEVOTHYROXINE SODIUM) [Concomitant]
  5. INEXIUM (ESOMEPRAZOLE MAGNSIUM) [Concomitant]
  6. HYDROCORTONE [Concomitant]

REACTIONS (4)
  - DEHYDRATION [None]
  - ANURIA [None]
  - PYELONEPHRITIS [None]
  - DIARRHOEA [None]
